FAERS Safety Report 5908960-4 (Version None)
Quarter: 2008Q4

REPORT INFORMATION
  Report Type: 
  Country: None (occurrence: None)
  Receive Date: 20081001
  Receipt Date: 20080926
  Transmission Date: 20090506
  Serious: Yes (Hospitalization)
  Sender: FDA-Public Use
  Company Number: WAES 0808AUS00320

PATIENT
  Age: 85 Year
  Sex: Male

DRUGS (2)
  1. CAP VORINOSTAT [Suspect]
     Indication: MYCOSIS FUNGOIDES
     Dosage: 400 MG DAILY PO
     Route: 048
     Dates: start: 20080813, end: 20080821
  2. CAP VORINOSTAT [Suspect]
     Indication: MYCOSIS FUNGOIDES
     Dosage: 400 MG DAILY PO
     Route: 048
     Dates: start: 20080826

REACTIONS (6)
  - CELLULITIS [None]
  - CONDITION AGGRAVATED [None]
  - HYPERTENSION [None]
  - LYMPHOMA [None]
  - PLEURAL EFFUSION [None]
  - PNEUMONIA [None]
